FAERS Safety Report 19098007 (Version 2)
Quarter: 2021Q2

REPORT INFORMATION
  Report Type: Report from Study
  Country: US (occurrence: US)
  Receive Date: 20210406
  Receipt Date: 20210616
  Transmission Date: 20210717
  Serious: Yes (Other)
  Sender: FDA-Public Use
  Company Number: NVSC2021US067593

PATIENT
  Age: 49 Year
  Sex: Female

DRUGS (1)
  1. KESIMPTA [Suspect]
     Active Substance: OFATUMUMAB
     Indication: MULTIPLE SCLEROSIS
     Dosage: 20 MG, QW
     Route: 058
     Dates: start: 20210321

REACTIONS (7)
  - Pain [Unknown]
  - Headache [Unknown]
  - Fatigue [Recovered/Resolved]
  - Urticaria [Recovered/Resolved]
  - Hypersensitivity [Unknown]
  - Chills [Recovered/Resolved]
  - Influenza like illness [Recovered/Resolved]

NARRATIVE: CASE EVENT DATE: 20210321
